FAERS Safety Report 4536800-7 (Version None)
Quarter: 2004Q4

REPORT INFORMATION
  Report Type: 
  Country: None (occurrence: None)
  Receive Date: 20041223
  Receipt Date: 20041214
  Transmission Date: 20050328
  Serious: Yes (Other)
  Sender: FDA-Public Use
  Company Number: US-JNJFOC-20040501364

PATIENT
  Sex: Female

DRUGS (1)
  1. RISPERDAL [Suspect]
     Indication: DRUG USE FOR UNKNOWN INDICATION
     Route: 049
     Dates: start: 20010901, end: 20020901

REACTIONS (20)
  - BLOOD PROLACTIN INCREASED [None]
  - CONSTIPATION [None]
  - DECREASED APPETITE [None]
  - DELUSION [None]
  - DEPRESSION [None]
  - DIARRHOEA [None]
  - DISTURBANCE IN ATTENTION [None]
  - GALACTORRHOEA [None]
  - GASTRIC POLYPS [None]
  - HALLUCINATION [None]
  - HEADACHE [None]
  - HEPATIC LESION [None]
  - INFERTILITY [None]
  - INSOMNIA [None]
  - MALAISE [None]
  - PANIC ATTACK [None]
  - PARANOIA [None]
  - PITUITARY TUMOUR BENIGN [None]
  - VISUAL DISTURBANCE [None]
  - WEIGHT DECREASED [None]
